FAERS Safety Report 7835065 (Version 5)
Quarter: 2013Q3

REPORT INFORMATION
  Report Type: Report from Study
  Country: US (occurrence: US)
  Receive Date: 20110301
  Receipt Date: 20130917
  Transmission Date: 20140515
  Serious: Yes (Life-Threatening, Hospitalization)
  Sender: FDA-Public Use
  Company Number: PHHO2008US14467

PATIENT
  Age: 52 Year
  Sex: Male

DRUGS (3)
  1. NEORAL [Suspect]
     Dosage: UNK
     Route: 048
     Dates: start: 20060815
  2. NEORAL [Suspect]
     Dosage: 100 MG AM, 75 MG PM
     Route: 048
     Dates: start: 20090213
  3. ZORTRESS [Suspect]
     Indication: IMMUNOSUPPRESSION
     Dosage: 0.75 MG, BID
     Route: 048
     Dates: start: 20080815

REACTIONS (11)
  - Concomitant disease progression [Not Recovered/Not Resolved]
  - Nephropathy toxic [Recovered/Resolved]
  - Renal failure acute [Not Recovered/Not Resolved]
  - Dehydration [Recovered/Resolved]
  - Hyperkalaemia [Recovered/Resolved]
  - Alveolitis [Not Recovered/Not Resolved]
  - Bronchial haemorrhage [Not Recovered/Not Resolved]
  - Pyrexia [Recovered/Resolved]
  - Cough [Recovered/Resolved]
  - Pulmonary congestion [Recovered/Resolved]
  - Oropharyngeal pain [Recovered/Resolved]
